FAERS Safety Report 6904346-4 (Version None)
Quarter: 2010Q3

REPORT INFORMATION
  Report Type: 
  Country: None (occurrence: None)
  Receive Date: 20100804
  Receipt Date: 20090502
  Transmission Date: 20110219
  Serious: No
  Sender: FDA-Public Use
  Company Number: US-PFIZER INC-2009207990

PATIENT
  Sex: Male
  Weight: 74.83 kg

DRUGS (8)
  1. LYRICA [Suspect]
     Indication: NERVOUSNESS
     Dosage: 50 MG, 2X/DAY
     Dates: start: 20090401
  2. SEROQUEL [Suspect]
     Indication: NERVOUSNESS
     Dosage: 50 MG, 1X/DAY
     Dates: start: 20090301
  3. NEXIUM [Concomitant]
     Indication: GASTRIC DISORDER
     Dosage: UNK
  4. QUINAPRIL [Concomitant]
     Dosage: UNK
  5. EFFEXOR [Concomitant]
     Dosage: UNK
  6. ASPIRIN [Concomitant]
     Dosage: UNK
  7. CARVEDILOL [Concomitant]
     Dosage: UNK
  8. PRAVASTATIN SODIUM [Concomitant]
     Dosage: UNK

REACTIONS (1)
  - BLOOD GLUCOSE DECREASED [None]
